FAERS Safety Report 14559777 (Version 2)
Quarter: 2018Q1

REPORT INFORMATION
  Report Type: Report from Study
  Country: None (occurrence: US)
  Receive Date: 20180221
  Receipt Date: 20180322
  Transmission Date: 20180509
  Serious: Yes (Death)
  Sender: FDA-Public Use
  Company Number: US-VIFOR (INTERNATIONAL) INC.-VIT-2018-01868

PATIENT
  Age: 69 Year
  Sex: Female
  Weight: 80.5 kg

DRUGS (20)
  1. RENVELA [Concomitant]
     Active Substance: SEVELAMER CARBONATE
  2. BENADRYL [Concomitant]
     Active Substance: DIPHENHYDRAMINE HYDROCHLORIDE
  3. NORCO [Concomitant]
     Active Substance: ACETAMINOPHEN\HYDROCODONE BITARTRATE
  4. AMITRIPTYLINE [Concomitant]
     Active Substance: AMITRIPTYLINE
  5. HYDRALAZINE [Concomitant]
     Active Substance: HYDRALAZINE HYDROCHLORIDE
  6. LINZESS [Concomitant]
     Active Substance: LINACLOTIDE
  7. MELATONIN [Concomitant]
     Active Substance: MELATONIN
  8. VELTASSA [Suspect]
     Active Substance: PATIROMER
     Indication: HYPERKALAEMIA
     Route: 048
     Dates: start: 20170912, end: 20180214
  9. CYMBALTA [Concomitant]
     Active Substance: DULOXETINE HYDROCHLORIDE
  10. FAMOTIDINE. [Concomitant]
     Active Substance: FAMOTIDINE
  11. GAVILAX [Concomitant]
     Active Substance: POLYETHYLENE GLYCOL 3350
  12. PARACETAMOL [Concomitant]
     Active Substance: ACETAMINOPHEN
  13. CARDURA [Concomitant]
     Active Substance: DOXAZOSIN MESYLATE
  14. CLONIDINE. [Concomitant]
     Active Substance: CLONIDINE
  15. AMLODIPINE [Concomitant]
     Active Substance: AMLODIPINE BESYLATE
  16. CLOPIDOGREL [Concomitant]
     Active Substance: CLOPIDOGREL BISULFATE
  17. COREG [Concomitant]
     Active Substance: CARVEDILOL
  18. METHADONE [Concomitant]
     Active Substance: METHADONE HYDROCHLORIDE
  19. ANTIVERT [Concomitant]
     Active Substance: MECLIZINE HYDROCHLORIDE
  20. GABAPENTIN. [Concomitant]
     Active Substance: GABAPENTIN

REACTIONS (1)
  - Cardiac arrest [Fatal]

NARRATIVE: CASE EVENT DATE: 20180214
